FAERS Safety Report 4701029-6 (Version None)
Quarter: 2005Q2

REPORT INFORMATION
  Report Type: 
  Country: None (occurrence: None)
  Receive Date: 20050627
  Receipt Date: 20050627
  Transmission Date: 20051028
  Serious: Yes (Life-Threatening, Hospitalization)
  Sender: FDA-Public Use
  Company Number: None

PATIENT
  Age: 52 Year
  Sex: Female
  Weight: 47.1741 kg

DRUGS (4)
  1. TARCEVA [Suspect]
     Indication: NON-SMALL CELL LUNG CANCER
     Dosage: 150MG PO
     Route: 048
     Dates: start: 20050511, end: 20050623
  2. COUMADIN [Suspect]
     Indication: PULMONARY EMBOLISM
     Dates: start: 20050615, end: 20050623
  3. DECADRON [Concomitant]
  4. COMPAZINE [Concomitant]

REACTIONS (10)
  - COAGULOPATHY [None]
  - FACIAL PALSY [None]
  - GASTROINTESTINAL HAEMORRHAGE [None]
  - HEPATIC ENZYME INCREASED [None]
  - HEPATIC FUNCTION ABNORMAL [None]
  - NAUSEA [None]
  - PNEUMONIA ASPIRATION [None]
  - PULMONARY EMBOLISM [None]
  - SEPSIS [None]
  - VOMITING [None]
